FAERS Safety Report 10340296 (Version 3)
Quarter: 2015Q3

REPORT INFORMATION
  Report Type: Spontaneous
  Country: US (occurrence: US)
  Receive Date: 20140724
  Receipt Date: 20150827
  Transmission Date: 20151125
  Serious: Yes (Hospitalization, Other)
  Sender: FDA-Public Use
  Company Number: US-ASTRAZENECA-2013SE65562

PATIENT
  Age: 26785 Day
  Sex: Female
  Weight: 90.7 kg

DRUGS (36)
  1. SEROQUEL [Suspect]
     Active Substance: QUETIAPINE FUMARATE
     Indication: BIPOLAR DISORDER
     Dosage: GENERIC, 600 MG
     Route: 048
  2. SEROQUEL [Suspect]
     Active Substance: QUETIAPINE FUMARATE
     Indication: BIPOLAR DISORDER
     Route: 048
     Dates: start: 201304
  3. BUMAX [Concomitant]
  4. CALCIUM CITRATE [Concomitant]
     Active Substance: CALCIUM CITRATE
     Indication: GASTRIC BYPASS
     Dosage: 1 PILL IN THE MORNING, 1PILL IN THE EVENING, 2 PILLS BEFORE BEDTIME
     Route: 048
  5. CARVEDILOL. [Concomitant]
     Active Substance: CARVEDILOL
     Indication: HEART RATE ABNORMAL
     Route: 048
     Dates: start: 20150819
  6. VITAMIN D [Concomitant]
     Active Substance: CHOLECALCIFEROL
     Indication: VITAMIN D DEFICIENCY
     Route: 048
  7. ILOTYCIN (ERYTHROMYCIN) [Concomitant]
     Indication: EYELID DISORDER
     Route: 047
  8. THYROID MEDICATION [Concomitant]
     Active Substance: UNSPECIFIED INGREDIENT
  9. ANTIHISTAMINE [Concomitant]
     Active Substance: UNSPECIFIED INGREDIENT
  10. SEROQUEL [Suspect]
     Active Substance: QUETIAPINE FUMARATE
     Indication: BIPOLAR DISORDER
     Route: 048
     Dates: start: 201303, end: 201304
  11. SEROQUEL [Suspect]
     Active Substance: QUETIAPINE FUMARATE
     Indication: BIPOLAR DISORDER
     Route: 048
     Dates: start: 2013
  12. METOPROLOL [Suspect]
     Active Substance: METOPROLOL
     Dosage: DAILY
     Route: 048
  13. LAMICTAL [Concomitant]
     Active Substance: LAMOTRIGINE
     Indication: BIPOLAR DISORDER
  14. FERROUS SULFATE [Concomitant]
     Active Substance: FERROUS SULFATE\FERROUS SULFATE, DRIED
     Indication: ANAEMIA
     Route: 048
  15. XARELTO [Concomitant]
     Active Substance: RIVAROXABAN
     Indication: ANTICOAGULANT THERAPY
     Route: 048
  16. TEGRETOL [Concomitant]
     Active Substance: CARBAMAZEPINE
  17. DEPAKOTE [Concomitant]
     Active Substance: DIVALPROEX SODIUM
     Indication: BIPOLAR DISORDER
  18. RESTERIL [Concomitant]
     Indication: SLEEP DISORDER
  19. TRILEPTAL [Concomitant]
     Active Substance: OXCARBAZEPINE
     Indication: BIPOLAR DISORDER
  20. ATROVENT [Concomitant]
     Active Substance: IPRATROPIUM BROMIDE
     Indication: RHINORRHOEA
     Route: 055
  21. VITAMIN B12 [Concomitant]
     Active Substance: CYANOCOBALAMIN
     Indication: ANAEMIA
     Route: 048
  22. MULTIVITAMIN [Concomitant]
     Active Substance: VITAMINS
     Indication: SUPPLEMENTATION THERAPY
     Dosage: DAILY
     Route: 048
  23. RESTORIL [Concomitant]
     Active Substance: TEMAZEPAM
     Indication: SLEEP DISORDER
     Route: 048
  24. SEROQUEL [Suspect]
     Active Substance: QUETIAPINE FUMARATE
     Indication: BIPOLAR DISORDER
     Route: 048
     Dates: start: 2005
  25. ASCORBIC ACID. [Concomitant]
     Active Substance: ASCORBIC ACID
     Indication: PROPHYLAXIS
     Route: 048
  26. POTASSIUM [Concomitant]
     Active Substance: POTASSIUM
     Indication: POLLAKIURIA
     Route: 048
  27. RYTHMOL [Concomitant]
     Active Substance: PROPAFENONE HYDROCHLORIDE
     Indication: HEART RATE ABNORMAL
     Route: 048
  28. XARELTO [Concomitant]
     Active Substance: RIVAROXABAN
     Indication: ATRIAL FIBRILLATION
     Route: 048
  29. SEROQUEL [Suspect]
     Active Substance: QUETIAPINE FUMARATE
     Indication: BIPOLAR DISORDER
     Route: 048
  30. SEROQUEL [Suspect]
     Active Substance: QUETIAPINE FUMARATE
     Indication: BIPOLAR DISORDER
     Route: 048
     Dates: start: 20150811
  31. POTASSIUM CHLORIDE. [Concomitant]
     Active Substance: POTASSIUM CHLORIDE
  32. ABILIFY [Concomitant]
     Active Substance: ARIPIPRAZOLE
     Indication: BIPOLAR DISORDER
  33. SEROQUEL [Suspect]
     Active Substance: QUETIAPINE FUMARATE
     Indication: BIPOLAR DISORDER
     Dosage: GENERIC, 2X200 MG
     Route: 048
  34. SEROQUEL [Suspect]
     Active Substance: QUETIAPINE FUMARATE
     Indication: BIPOLAR DISORDER
     Dosage: GENERIC, 300 MG DAILY
     Route: 048
     Dates: start: 20150817
  35. CARVEDILOL. [Concomitant]
     Active Substance: CARVEDILOL
     Indication: BLOOD PRESSURE ABNORMAL
     Route: 048
     Dates: start: 20150819
  36. FERROUS SULFATE [Concomitant]
     Active Substance: FERROUS SULFATE\FERROUS SULFATE, DRIED
     Indication: VITAMIN B COMPLEX DEFICIENCY
     Route: 048

REACTIONS (28)
  - Diarrhoea [Not Recovered/Not Resolved]
  - Cerebrovascular accident [Unknown]
  - Heart rate irregular [Unknown]
  - Inadequate diet [Unknown]
  - Spinal osteoarthritis [Unknown]
  - Intentional product misuse [Unknown]
  - Cataract [Unknown]
  - Dysphagia [Unknown]
  - Condition aggravated [Unknown]
  - Mental impairment [Unknown]
  - Drug effect decreased [Unknown]
  - Flatulence [Not Recovered/Not Resolved]
  - Activities of daily living impaired [Unknown]
  - Lactose intolerance [Unknown]
  - Insomnia [Unknown]
  - Chest pain [Unknown]
  - Fatigue [Unknown]
  - Intentional product use issue [Unknown]
  - Weight increased [Unknown]
  - Gait disturbance [Unknown]
  - Circulatory collapse [Unknown]
  - Atrial fibrillation [Unknown]
  - Mania [Unknown]
  - Blood pressure fluctuation [Unknown]
  - Gastrointestinal disorder [Unknown]
  - Rotator cuff syndrome [Unknown]
  - Therapeutic response unexpected [Unknown]
  - Drug ineffective [Unknown]

NARRATIVE: CASE EVENT DATE: 2004
